FAERS Safety Report 5235773-1 (Version None)
Quarter: 2007Q1

REPORT INFORMATION
  Report Type: 
  Country: None (occurrence: None)
  Receive Date: 20070212
  Receipt Date: 20070205
  Transmission Date: 20070707
  Serious: Yes (Disabling, Other)
  Sender: FDA-Public Use
  Company Number: GB-AVENTIS-200711097GDDC

PATIENT
  Age: 39 Year
  Sex: Female

DRUGS (1)
  1. CLOMIPHENE CITRATE [Suspect]
     Indication: INFERTILITY
     Route: 048
     Dates: start: 20070111, end: 20070115

REACTIONS (2)
  - ASTHMA [None]
  - MIGRAINE [None]
